FAERS Safety Report 4712024-5 (Version None)
Quarter: 2005Q2

REPORT INFORMATION
  Report Type: 
  Country: None (occurrence: None)
  Receive Date: 20050629
  Receipt Date: 20050412
  Transmission Date: 20051028
  Serious: No
  Sender: FDA-Public Use
  Company Number: 05P-163-0297131-00

PATIENT
  Age: 65 Year
  Sex: Male
  Weight: 113.5 kg

DRUGS (10)
  1. HUMIRA [Suspect]
     Indication: RHEUMATOID ARTHRITIS
     Dosage: SEE IMAGE
     Route: 058
     Dates: start: 20040101, end: 20040101
  2. HUMIRA [Suspect]
     Indication: RHEUMATOID ARTHRITIS
     Dosage: SEE IMAGE
     Route: 058
     Dates: start: 20040101, end: 20050101
  3. GLIMEPIRIDE [Concomitant]
  4. VERAPAMIL [Concomitant]
  5. CAPTOPRIL [Concomitant]
  6. FLOMAX [Concomitant]
  7. ATORVASTATIN CALCIUM [Concomitant]
  8. LEVOTHYROXINE SODIUM [Concomitant]
  9. HYDROCHLOROTHIAZIDE [Concomitant]
  10. GLUCOPHAGE [Concomitant]

REACTIONS (2)
  - NODULE ON EXTREMITY [None]
  - SKIN ULCER [None]
